FAERS Safety Report 11695629 (Version 2)
Quarter: 2015Q4

REPORT INFORMATION
  Report Type: Spontaneous
  Country: US (occurrence: US)
  Receive Date: 20151104
  Receipt Date: 20151111
  Transmission Date: 20160304
  Serious: Yes (Hospitalization)
  Sender: FDA-Public Use
  Company Number: US-BEH-2015055294

PATIENT
  Age: 17 Year
  Sex: Female
  Weight: 42 kg

DRUGS (31)
  1. DIPHENHYDRAMINE. [Concomitant]
     Active Substance: DIPHENHYDRAMINE
  2. LEVAQUIN [Concomitant]
     Active Substance: LEVOFLOXACIN
  3. SOLU-CORTEF [Concomitant]
     Active Substance: HYDROCORTISONE SODIUM SUCCINATE
  4. EPIPEN [Concomitant]
     Active Substance: EPINEPHRINE
  5. MACROBID [Concomitant]
     Active Substance: NITROFURANTOIN\NITROFURANTOIN MONOHYDRATE
  6. BENTYL [Concomitant]
     Active Substance: DICYCLOMINE HYDROCHLORIDE
  7. GENTAMYCIN [Concomitant]
     Active Substance: GENTAMICIN
  8. ZANTAC [Concomitant]
     Active Substance: RANITIDINE HYDROCHLORIDE
  9. SINGULAIR [Concomitant]
     Active Substance: MONTELUKAST SODIUM
  10. MULTIVITAMINS [Concomitant]
     Active Substance: VITAMINS
  11. LMX [Concomitant]
     Active Substance: LIDOCAINE
  12. BIAXIN [Concomitant]
     Active Substance: CLARITHROMYCIN
  13. BACTRIM [Concomitant]
     Active Substance: SULFAMETHOXAZOLE\TRIMETHOPRIM
  14. PREDNISONE. [Concomitant]
     Active Substance: PREDNISONE
  15. HIZENTRA [Suspect]
     Active Substance: HUMAN IMMUNOGLOBULIN G
     Dosage: 4 GM 20 ML VIAL
     Route: 058
     Dates: start: 20110310
  16. ACETAMINOPHEN. [Concomitant]
     Active Substance: ACETAMINOPHEN
  17. KETOROLAC [Concomitant]
     Active Substance: KETOROLAC\KETOROLAC TROMETHAMINE
  18. TAMIFLU [Concomitant]
     Active Substance: OSELTAMIVIR PHOSPHATE
  19. AUGMENTIN [Concomitant]
     Active Substance: AMOXICILLIN\CLAVULANATE POTASSIUM
  20. ERYTHROMYCIN. [Concomitant]
     Active Substance: ERYTHROMYCIN
     Dosage: EYE OINTMENT
     Route: 047
  21. CORTEF [Concomitant]
     Active Substance: HYDROCORTISONE
  22. ALLEGRA [Concomitant]
     Active Substance: FEXOFENADINE HYDROCHLORIDE
  23. NEXIUM [Concomitant]
     Active Substance: ESOMEPRAZOLE MAGNESIUM
  24. FLUDROCORTISONE [Concomitant]
     Active Substance: FLUDROCORTISONE
  25. ALBUTEROL. [Concomitant]
     Active Substance: ALBUTEROL
  26. DIAMOX SEQUELS [Concomitant]
     Active Substance: ACETAZOLAMIDE
  27. ZOFRAN [Concomitant]
     Active Substance: ONDANSETRON HYDROCHLORIDE
  28. MIRALAX [Concomitant]
     Active Substance: POLYETHYLENE GLYCOL 3350
  29. NASONEX [Concomitant]
     Active Substance: MOMETASONE FUROATE
  30. HIZENTRA [Suspect]
     Active Substance: HUMAN IMMUNOGLOBULIN G
     Indication: IMMUNODEFICIENCY COMMON VARIABLE
     Dosage: 2 GM 10 ML VIAL
     Route: 058
     Dates: start: 20110310
  31. NEURONTIN [Concomitant]
     Active Substance: GABAPENTIN

REACTIONS (2)
  - Hospitalisation [Unknown]
  - Gallbladder operation [Unknown]

NARRATIVE: CASE EVENT DATE: 20151026
